FAERS Safety Report 9851838 (Version 4)
Quarter: 2014Q1

REPORT INFORMATION
  Report Type: Spontaneous
  Country: JP (occurrence: JP)
  Receive Date: 20140129
  Receipt Date: 20140304
  Transmission Date: 20141002
  Serious: Yes (Life-Threatening, Other)
  Sender: FDA-Public Use
  Company Number: JP-MERCK-1401JPN011729

PATIENT
  Age: 92 Year
  Sex: Female
  Weight: 43 kg

DRUGS (3)
  1. JANUVIA TABLETS 50MG [Suspect]
     Indication: DIABETES MELLITUS
     Dosage: 50 MG, BID
     Route: 048
     Dates: end: 20130615
  2. AMARYL [Suspect]
     Indication: DIABETES MELLITUS
     Dosage: 1 MG, BID
     Route: 048
     Dates: end: 20130604
  3. METGLUCO [Suspect]
     Indication: DIABETES MELLITUS
     Dosage: 250 MG, TID
     Route: 048

REACTIONS (5)
  - Hypoglycaemia [Recovered/Resolved]
  - Hemiplegia [Recovered/Resolved]
  - Aphasia [Recovered/Resolved]
  - Renal failure acute [Unknown]
  - Hyperglycaemia [Recovered/Resolved]
